FAERS Safety Report 14257913 (Version 2)
Quarter: 2017Q4

REPORT INFORMATION
  Report Type: Spontaneous
  Country: CA (occurrence: CA)
  Receive Date: 20171207
  Receipt Date: 20171214
  Transmission Date: 20180321
  Serious: Yes (Other)
  Sender: FDA-Public Use
  Company Number: CA-ROCHE-2032839

PATIENT
  Age: 71 Year
  Sex: Male

DRUGS (1)
  1. RITUXAN [Suspect]
     Active Substance: RITUXIMAB
     Indication: RHEUMATOID ARTHRITIS
     Route: 042

REACTIONS (1)
  - Penile haemorrhage [Recovered/Resolved]

NARRATIVE: CASE EVENT DATE: 20171024
